FAERS Safety Report 8911889 (Version 1)
Quarter: 2012Q4

REPORT INFORMATION
  Report Type: 
  Country: CN (occurrence: CN)
  Receive Date: 20121115
  Receipt Date: 20121115
  Transmission Date: 20130627
  Serious: Yes (Death, Hospitalization)
  Sender: FDA-Public Use
  Company Number: CN-GLAXOSMITHKLINE-B0844404A

PATIENT
  Age: 40 Year
  Sex: Male
  Weight: 75 kg

DRUGS (2)
  1. LAMICTAL [Suspect]
     Indication: EPILEPSY
     Dosage: 75MG Twice per day
     Route: 048
     Dates: start: 20120823
  2. SODIUM VALPROATE [Concomitant]
     Indication: EPILEPSY
     Dosage: .54MG per day
     Route: 048

REACTIONS (3)
  - Rash [Fatal]
  - Pyrexia [Fatal]
  - Coma [Unknown]
